FAERS Safety Report 17025657 (Version 2)
Quarter: 2019Q4

REPORT INFORMATION
  Report Type: Spontaneous
  Country: US (occurrence: US)
  Receive Date: 20191113
  Receipt Date: 20191209
  Transmission Date: 20200122
  Serious: No
  Sender: FDA-Public Use
  Company Number: US-PFIZER INC-2019486596

PATIENT
  Age: 75 Year
  Sex: Female

DRUGS (1)
  1. EUCRISA [Suspect]
     Active Substance: CRISABOROLE
     Dosage: UNK, 2X/DAY [APPLY TO AFFECTED AREA(S) TWICE A DAY]
     Route: 061

REACTIONS (6)
  - Application site pruritus [Recovering/Resolving]
  - Application site acne [Recovering/Resolving]
  - Application site pain [Recovering/Resolving]
  - Rosacea [Unknown]
  - Skin tightness [Recovering/Resolving]
  - Application site rash [Recovering/Resolving]
